FAERS Safety Report 9683922 (Version 3)
Quarter: 2014Q4

REPORT INFORMATION
  Report Type: Spontaneous
  Country: US (occurrence: US)
  Receive Date: 20131112
  Receipt Date: 20141104
  Transmission Date: 20150529
  Serious: No
  Sender: FDA-Public Use
  Company Number: US-MALLINCKRODT-T201304368

PATIENT
  Sex: Female

DRUGS (6)
  1. FENTANYL TRANSDERMAL SYSTEM [Suspect]
     Active Substance: FENTANYL
     Dosage: 50 UG/HR, Q57H
     Route: 062
  2. EPITOL [Concomitant]
     Active Substance: CARBAMAZEPINE
     Dosage: UNK
  3. XANAX [Concomitant]
     Active Substance: ALPRAZOLAM
     Dosage: UNK
  4. FENTANYL TRANSDERMAL SYSTEM [Suspect]
     Active Substance: FENTANYL
     Indication: PAIN
     Dosage: 50 UG/HR, Q72H
     Route: 062
  5. NEURONTIN [Concomitant]
     Active Substance: GABAPENTIN
     Dosage: UNK
  6. FENTANYL TRANSDERMAL SYSTEM [Suspect]
     Active Substance: FENTANYL
     Indication: PAIN
     Dosage: UNK
     Route: 062

REACTIONS (7)
  - Drug effect decreased [Not Recovered/Not Resolved]
  - Medication residue present [Not Recovered/Not Resolved]
  - Application site perspiration [Not Recovered/Not Resolved]
  - Product adhesion issue [Not Recovered/Not Resolved]
  - Product physical issue [Recovered/Resolved]
  - Drug effect increased [Not Recovered/Not Resolved]
  - Drug ineffective [Not Recovered/Not Resolved]
